FAERS Safety Report 6051946-2 (Version None)
Quarter: 2009Q1

REPORT INFORMATION
  Report Type: 
  Country: None (occurrence: None)
  Receive Date: 20090121
  Receipt Date: 20080313
  Transmission Date: 20090719
  Serious: Yes (Other)
  Sender: FDA-Public Use
  Company Number: HQWYE200616JUL04

PATIENT
  Age: 26 Year
  Sex: Female
  Weight: 92.16 kg

DRUGS (2)
  1. PREMPRO [Suspect]
  2. PREMARIN [Suspect]
     Indication: HORMONE REPLACEMENT THERAPY

REACTIONS (13)
  - ABDOMINAL PAIN UPPER [None]
  - BACK PAIN [None]
  - BLADDER DISORDER [None]
  - BREAST TENDERNESS [None]
  - CALCULUS BLADDER [None]
  - DIZZINESS [None]
  - DRUG INEFFECTIVE [None]
  - DYSPNOEA [None]
  - JOINT SWELLING [None]
  - PULMONARY EMBOLISM [None]
  - SYNCOPE [None]
  - THROMBOSIS [None]
  - VAGINAL HAEMORRHAGE [None]
